FAERS Safety Report 5677035-4 (Version None)
Quarter: 2008Q1

REPORT INFORMATION
  Report Type: 
  Country: None (occurrence: None)
  Receive Date: 20080324
  Receipt Date: 20080319
  Transmission Date: 20080703
  Serious: Yes (Hospitalization)
  Sender: FDA-Public Use
  Company Number: US-BRISTOL-MYERS SQUIBB COMPANY-14121008

PATIENT
  Age: 52 Year
  Sex: Female
  Weight: 100 kg

DRUGS (8)
  1. PACLITAXEL [Suspect]
     Indication: BREAST CANCER METASTATIC
     Dosage: THERAPY STARTED ON 31-JAN-2008 MOST RECENT DOSE ON 14-FEB-2008 FREQUENCY: DAY 1, 8 AND 15
     Route: 042
     Dates: start: 20080214, end: 20080214
  2. GEMZAR [Suspect]
     Indication: BREAST CANCER METASTATIC
     Dosage: THERAPY STARTED ON 31-JAN-2008 MOST RECENT DOSE ON 14-FEB-2008 FREQUENCY: DAY 1 AND 15
     Route: 042
     Dates: start: 20080214, end: 20080214
  3. BEVACIZUMAB [Suspect]
     Indication: BREAST CANCER METASTATIC
     Dosage: THERAPY STARTED ON 31-JAN-2008 MOST RECENT DOSE ON 14-FEB-2008 FREQUENCY: DAY 1 AND 15
     Route: 042
     Dates: start: 20080214, end: 20080214
  4. ADVIL [Concomitant]
     Dates: start: 20071214
  5. HYDROMORPHONE HCL [Concomitant]
     Dates: start: 20080104
  6. LORAZEPAM [Concomitant]
     Dates: start: 20080114
  7. PREDNISONE TAB [Concomitant]
     Dates: start: 20080104
  8. DULCOLAX [Concomitant]
     Dates: start: 20080104

REACTIONS (3)
  - CARDIAC FAILURE CONGESTIVE [None]
  - PERICARDIAL EFFUSION [None]
  - PULMONARY EMBOLISM [None]
